FAERS Safety Report 24287789 (Version 1)
Quarter: 2024Q3

REPORT INFORMATION
  Report Type: Spontaneous
  Country: US (occurrence: None)
  Receive Date: 20240905
  Receipt Date: 20240905
  Transmission Date: 20241017
  Serious: Yes (Disabling, Other)
  Sender: Public
  Company Number: None

PATIENT
  Age: 59 Year
  Sex: Female
  Weight: 67.5 kg

DRUGS (5)
  1. BUPRENORPHINE [Suspect]
     Active Substance: BUPRENORPHINE
     Indication: Pain
     Dates: start: 20110601
  2. ABILIFY [Suspect]
     Active Substance: ARIPIPRAZOLE
  3. LEVOTHYROXINE [Concomitant]
     Active Substance: LEVOTHYROXINE\LEVOTHYROXINE SODIUM
  4. BUPRENORPHINE [Concomitant]
     Active Substance: BUPRENORPHINE
  5. ALPRAZOLAM [Concomitant]
     Active Substance: ALPRAZOLAM

REACTIONS (5)
  - Tardive dyskinesia [None]
  - Dental caries [None]
  - Tooth loss [None]
  - Tooth fracture [None]
  - Quality of life decreased [None]

NARRATIVE: CASE EVENT DATE: 20210101
